FAERS Safety Report 5306527-2 (Version None)
Quarter: 2007Q2

REPORT INFORMATION
  Report Type: 
  Country: None (occurrence: None)
  Receive Date: 20070418
  Receipt Date: 20070403
  Transmission Date: 20071010
  Serious: Yes (Other)
  Sender: FDA-Public Use
  Company Number: 2007RR-06768

PATIENT
  Age: 37 Year
  Sex: Male
  Weight: 93 kg

DRUGS (5)
  1. CARVEDILOL (CARVEDILOL) UNKNOWN [Suspect]
     Indication: CARDIAC FAILURE
     Dosage: 10 MG, QD
  2. FUROSEMIDE [Suspect]
     Indication: CARDIAC FAILURE
     Dosage: 40 MG, QD
  3. SPIRONOLACTONE [Concomitant]
  4. CANDESARTAN [Concomitant]
  5. METOPROLOL TARTRATE [Concomitant]

REACTIONS (1)
  - DIABETES MELLITUS [None]
